FAERS Safety Report 5269912-3 (Version None)
Quarter: 2007Q1

REPORT INFORMATION
  Report Type: 
  Country: None (occurrence: None)
  Receive Date: 20070314
  Receipt Date: 20070227
  Transmission Date: 20070707
  Serious: Yes (Other)
  Sender: FDA-Public Use
  Company Number: 011236

PATIENT
  Age: 36 Year
  Sex: Female

DRUGS (3)
  1. CLARAVIS [Suspect]
     Dosage: 60 MG/DAY, ORAL, 80 MG/DAY, ORAL
     Route: 048
     Dates: start: 20061019, end: 20061101
  2. CLARAVIS [Suspect]
     Dosage: 60 MG/DAY, ORAL, 80 MG/DAY, ORAL
     Route: 048
     Dates: start: 20061101, end: 20070227
  3. ORTHO-NOVUM [Concomitant]

REACTIONS (3)
  - ABORTION INDUCED [None]
  - DRUG EXPOSURE DURING PREGNANCY [None]
  - PREGNANCY ON ORAL CONTRACEPTIVE [None]
